FAERS Safety Report 24252908 (Version 1)
Quarter: 2024Q3

REPORT INFORMATION
  Report Type: Report from Study
  Country: BR (occurrence: BR)
  Receive Date: 20240827
  Receipt Date: 20240827
  Transmission Date: 20241017
  Serious: Yes (Other)
  Sender: JOHNSON AND JOHNSON
  Company Number: BR-JNJFOC-20240851708

PATIENT
  Age: 51 Year
  Sex: Female
  Weight: 48 kg

DRUGS (10)
  1. REMICADE [Suspect]
     Active Substance: INFLIXIMAB
     Indication: Crohn^s disease
     Dosage: USES 5 ML PER KILO (3 AMPOULES)
     Route: 041
     Dates: start: 20240108
  2. REMICADE [Suspect]
     Active Substance: INFLIXIMAB
     Indication: Spondylitis
  3. REMICADE [Suspect]
     Active Substance: INFLIXIMAB
     Indication: Pyoderma gangrenosum
  4. REMICADE [Suspect]
     Active Substance: INFLIXIMAB
     Indication: Arthritis
  5. REMICADE [Suspect]
     Active Substance: INFLIXIMAB
     Indication: Sacroiliitis
  6. PREDNISONE [Concomitant]
     Active Substance: PREDNISONE
     Dates: start: 202301
  7. PREDNISONE [Concomitant]
     Active Substance: PREDNISONE
     Dates: start: 202311
  8. MESALAMINE [Concomitant]
     Active Substance: MESALAMINE
  9. AZATHIOPRINE [Concomitant]
     Active Substance: AZATHIOPRINE
  10. BETAMETHASONE DIPROPIONATE [Concomitant]
     Active Substance: BETAMETHASONE DIPROPIONATE
     Dosage: 1 AMPOULE A MONTH

REACTIONS (9)
  - Cerebrovascular accident [Unknown]
  - Cognitive disorder [Unknown]
  - Condition aggravated [Unknown]
  - Nail disorder [Unknown]
  - Alopecia [Unknown]
  - Arthralgia [Unknown]
  - Dengue fever [Unknown]
  - Therapeutic product effect incomplete [Unknown]
  - Hypersensitivity [Unknown]

NARRATIVE: CASE EVENT DATE: 20240301
